FAERS Safety Report 11490921 (Version 1)
Quarter: 2015Q3

REPORT INFORMATION
  Report Type: Spontaneous
  Country: US (occurrence: US)
  Receive Date: 20150910
  Receipt Date: 20150910
  Transmission Date: 20151125
  Serious: Yes (Other)
  Sender: FDA-Public Use
  Company Number: US-RECKITT BENCKISER PHARMACEUTICAL, INC-RB-73650-2014

PATIENT
  Age: 38 Year
  Sex: Female
  Weight: 53.61 kg

DRUGS (4)
  1. SUBUTEX [Suspect]
     Active Substance: BUPRENORPHINE HYDROCHLORIDE
     Indication: DRUG DEPENDENCE
     Dosage: TAPERING DOSE TO 2 MG
     Route: 065
  2. SUBUTEX [Suspect]
     Active Substance: BUPRENORPHINE HYDROCHLORIDE
     Dosage: 2MG, 1/8 OF DOSE A DAY
     Route: 065
     Dates: start: 201406
  3. ALPHA LIPOIC ACID [Concomitant]
     Active Substance: .ALPHA.-LIPOIC ACID
     Indication: PRODUCT USED FOR UNKNOWN INDICATION
     Dosage: UNK
     Route: 065
  4. SUBUTEX [Suspect]
     Active Substance: BUPRENORPHINE HYDROCHLORIDE
     Dosage: UNK
     Route: 065
     Dates: start: 20150227

REACTIONS (5)
  - Intentional underdose [Recovered/Resolved]
  - Maternal exposure during pregnancy [Recovered/Resolved]
  - Breech presentation [Recovered/Resolved]
  - Premature delivery [Recovered/Resolved]
  - Amniotic fluid volume decreased [Recovered/Resolved]

NARRATIVE: CASE EVENT DATE: 201406
